FAERS Safety Report 4545916-0 (Version None)
Quarter: 2005Q1

REPORT INFORMATION
  Report Type: 
  Country: None (occurrence: None)
  Receive Date: 20050106
  Receipt Date: 20041230
  Transmission Date: 20050727
  Serious: Yes (Other)
  Sender: FDA-Public Use
  Company Number: PHEH2004US13767

PATIENT
  Age: 71 Year
  Sex: Female

DRUGS (2)
  1. ZELNORM [Suspect]
     Indication: IRRITABLE BOWEL SYNDROME
     Dosage: 6 MG, BID
  2. ACTOS /USA/ [Concomitant]
     Indication: DIABETES MELLITUS NON-INSULIN-DEPENDENT

REACTIONS (9)
  - CONSTIPATION [None]
  - DIARRHOEA [None]
  - FAECES HARD [None]
  - HAEMATOCHEZIA [None]
  - INSOMNIA [None]
  - MUSCLE SPASMS [None]
  - PROCTALGIA [None]
  - RECTAL DISCHARGE [None]
  - VOMITING [None]
